FAERS Safety Report 11234944 (Version 1)
Quarter: 2015Q2

REPORT INFORMATION
  Report Type: Spontaneous
  Country: FI (occurrence: None)
  Receive Date: 20150630
  Receipt Date: 20150630
  Transmission Date: 20150821
  Serious: Yes (Other)
  Sender: FDA-Public Use
  Company Number: 2015AJA00019

PATIENT
  Weight: 1.78 kg

DRUGS (2)
  1. CAFFEINE SOLUTION [Concomitant]
  2. LEVETIRACETAM. [Suspect]
     Active Substance: LEVETIRACETAM
     Dosage: 1 ML OF 100 MG/ ML ,ORAL
     Route: 048

REACTIONS (11)
  - Anaemia [None]
  - Wrong patient received medication [None]
  - Lethargy [None]
  - Unresponsive to stimuli [None]
  - Apnoeic attack [None]
  - Heart rate decreased [None]
  - Toxicity to various agents [None]
  - Oxygen saturation decreased [None]
  - Somnolence [None]
  - Gamma-glutamyltransferase increased [None]
  - Accidental overdose [None]

NARRATIVE: CASE EVENT DATE: 2015
